FAERS Safety Report 9433688 (Version 2)
Quarter: 2013Q3

REPORT INFORMATION
  Report Type: Spontaneous
  Country: US (occurrence: US)
  Receive Date: 20130731
  Receipt Date: 20130816
  Transmission Date: 20140515
  Serious: Yes (Hospitalization)
  Sender: FDA-Public Use
  Company Number: US-ELI_LILLY_AND_COMPANY-US201305004970

PATIENT
  Sex: Male

DRUGS (7)
  1. HUMALOG 50% LISPRO, 50% NPL [Suspect]
     Indication: TYPE 2 DIABETES MELLITUS
     Dosage: 20 U, BID
     Dates: start: 20130220
  2. HUMALOG 50% LISPRO, 50% NPL [Suspect]
     Dosage: 56 U, EACH MORNING
  3. HUMALOG 50% LISPRO, 50% NPL [Suspect]
     Dosage: 64 U, EACH EVENING
  4. HUMALOG 50% LISPRO, 50% NPL [Suspect]
     Dosage: 100 U, BID
     Dates: start: 20130301
  5. HUMALOG 50% LISPRO, 50% NPL [Suspect]
     Dosage: 120 U, BID
     Dates: start: 201303, end: 20130627
  6. VICTOZA [Suspect]
     Indication: DIABETES MELLITUS
     Dosage: .06 MG, UNK
  7. LINAGLIPTIN [Suspect]
     Dosage: UNK
     Dates: start: 201306

REACTIONS (16)
  - Nephropathy [Not Recovered/Not Resolved]
  - Weight increased [Unknown]
  - Abdominal pain upper [Unknown]
  - Abdominal distension [Unknown]
  - Muscle tightness [Unknown]
  - Fatigue [Unknown]
  - Asthenia [Unknown]
  - Blood glucose increased [Unknown]
  - Functional gastrointestinal disorder [Unknown]
  - Myalgia [Unknown]
  - Muscle hypertrophy [Unknown]
  - Malaise [Not Recovered/Not Resolved]
  - Feeling cold [Unknown]
  - Gastrointestinal sounds abnormal [Unknown]
  - Defaecation urgency [Unknown]
  - Injection site pain [Recovered/Resolved]
